FAERS Safety Report 20209144 (Version 1)
Quarter: 2021Q4

REPORT INFORMATION
  Report Type: Spontaneous
  Country: CO (occurrence: CO)
  Receive Date: 20211220
  Receipt Date: 20211220
  Transmission Date: 20220303
  Serious: No
  Sender: FDA-Public Use
  Company Number: CO-PFIZER INC-2020317214

PATIENT
  Age: 11 Year
  Sex: Male

DRUGS (4)
  1. GENOTROPIN [Suspect]
     Active Substance: SOMATROPIN
     Indication: Body height below normal
     Dosage: 1 MG, DAILY
     Route: 058
     Dates: start: 202006
  2. GENOTROPIN [Suspect]
     Active Substance: SOMATROPIN
     Indication: Bone disorder
     Dosage: 1 MG, DAILY
     Route: 058
     Dates: start: 202003, end: 202012
  3. GENOTROPIN [Suspect]
     Active Substance: SOMATROPIN
     Indication: Growth disorder
  4. GENOTROPIN [Suspect]
     Active Substance: SOMATROPIN
     Indication: Growth hormone deficiency

REACTIONS (6)
  - Pain [Unknown]
  - Contusion [Recovered/Resolved]
  - Injection site pain [Unknown]
  - Device information output issue [Unknown]
  - Drug dose omission by device [Unknown]
  - Wrong technique in product usage process [Unknown]

NARRATIVE: CASE EVENT DATE: 20200801
